FAERS Safety Report 9215828 (Version 1)
Quarter: 2013Q2

REPORT INFORMATION
  Report Type: Report from Study
  Country: US (occurrence: US)
  Receive Date: 20130408
  Receipt Date: 20130408
  Transmission Date: 20140414
  Serious: Yes (Other)
  Sender: FDA-Public Use
  Company Number: US-JNJFOC-20130318869

PATIENT
  Age: 60 Year
  Sex: Male
  Weight: 102.06 kg

DRUGS (2)
  1. REMICADE [Suspect]
     Indication: RHEUMATOID ARTHRITIS
     Route: 042
  2. OTHER THERAPEUTIC MEDICATIONS [Suspect]
     Indication: HERPES ZOSTER
     Route: 065
     Dates: start: 2013, end: 2013

REACTIONS (4)
  - Suicidal ideation [Unknown]
  - Paranoia [Unknown]
  - Tremor [Unknown]
  - Herpes zoster [Recovered/Resolved]
